FAERS Safety Report 6803265-1 (Version None)
Quarter: 2010Q2

REPORT INFORMATION
  Report Type: 
  Country: None (occurrence: None)
  Receive Date: 20100628
  Receipt Date: 20091027
  Transmission Date: 20101027
  Serious: No
  Sender: FDA-Public Use
  Company Number: US-ASTRAZENECA-2009SE22847

PATIENT
  Age: 70 Year
  Sex: Male
  Weight: 113.4 kg

DRUGS (3)
  1. ZOLADEX [Suspect]
     Indication: PROSTATE CANCER
     Route: 058
     Dates: start: 20090718
  2. VERAPAMIL [Concomitant]
     Indication: HYPERTENSION
  3. ENALAPRIL MALEATE [Concomitant]
     Indication: HYPERTENSION

REACTIONS (2)
  - DYSGEUSIA [None]
  - PALPITATIONS [None]
